FAERS Safety Report 4681292-0 (Version None)
Quarter: 2005Q2

REPORT INFORMATION
  Report Type: 
  Country: None (occurrence: None)
  Receive Date: 20050603
  Receipt Date: 20050525
  Transmission Date: 20051028
  Serious: Yes (Life-Threatening)
  Sender: FDA-Public Use
  Company Number: ES-ROCHE-405853

PATIENT
  Age: 21 Year
  Sex: Female
  Weight: 50 kg

DRUGS (20)
  1. KETOROLAC TROMETHAMINE [Suspect]
     Indication: DRUG USE FOR UNKNOWN INDICATION
     Route: 042
     Dates: start: 20050302, end: 20050308
  2. NOLOTIL [Suspect]
     Indication: PYREXIA
     Route: 042
     Dates: start: 20050301, end: 20050308
  3. DEPAKENE [Suspect]
     Indication: CONVULSION
     Route: 042
     Dates: start: 20050302, end: 20050310
  4. OMEPRAZOLE [Suspect]
     Indication: DRUG USE FOR UNKNOWN INDICATION
     Route: 065
     Dates: start: 20050302, end: 20050308
  5. PARACETAMOL [Suspect]
     Indication: DRUG USE FOR UNKNOWN INDICATION
     Route: 042
     Dates: start: 20050302, end: 20050308
  6. TRANXILIUM [Suspect]
     Indication: DRUG USE FOR UNKNOWN INDICATION
     Route: 048
     Dates: start: 20050302, end: 20050308
  7. LIDOCAINE [Concomitant]
  8. REMIFENTANIL [Concomitant]
  9. NIMBEX [Concomitant]
  10. MANNITOL [Concomitant]
  11. ULTANE [Concomitant]
  12. FENTANYL [Concomitant]
  13. SOLINITRINA [Concomitant]
  14. PROPOFOL [Concomitant]
  15. KURGAN [Concomitant]
  16. VALIUM [Concomitant]
  17. PANTOPRAZOLE [Concomitant]
  18. ZOFRAN [Concomitant]
     Dates: start: 20050302, end: 20050308
  19. BUPREX [Concomitant]
     Dates: start: 20050302, end: 20050302
  20. MIDAZOLAM [Concomitant]

REACTIONS (4)
  - AGRANULOCYTOSIS [None]
  - DRUG INTERACTION [None]
  - LEUKOPENIA [None]
  - PANCYTOPENIA [None]
